FAERS Safety Report 5603930-8 (Version None)
Quarter: 2008Q1

REPORT INFORMATION
  Report Type: 
  Country: None (occurrence: None)
  Receive Date: 20080124
  Receipt Date: 20080124
  Transmission Date: 20080703
  Serious: No
  Sender: FDA-Public Use
  Company Number: None

PATIENT
  Sex: Female
  Weight: 66.2252 kg

DRUGS (2)
  1. LEXAPRO [Suspect]
     Indication: DEPRESSION
     Dosage: 10MG QD PO
     Route: 048
     Dates: start: 20080108, end: 20080113
  2. LEXAPRO [Suspect]
     Indication: OBSESSIVE-COMPULSIVE DISORDER
     Dosage: 10MG QD PO
     Route: 048
     Dates: start: 20080108, end: 20080113

REACTIONS (5)
  - ABNORMAL BEHAVIOUR [None]
  - CONFUSIONAL STATE [None]
  - FEAR [None]
  - OBSESSIVE-COMPULSIVE DISORDER [None]
  - THINKING ABNORMAL [None]
